FAERS Safety Report 22377777 (Version 1)
Quarter: 2023Q2

REPORT INFORMATION
  Report Type: Spontaneous
  Country: US (occurrence: US)
  Receive Date: 20230529
  Receipt Date: 20230529
  Transmission Date: 20230722
  Serious: No
  Sender: FDA-Public Use
  Company Number: US-MTPC-MTDA2023-0011557

PATIENT
  Age: 56 Year
  Sex: Male

DRUGS (6)
  1. RADICAVA [Suspect]
     Active Substance: EDARAVONE
     Indication: Amyotrophic lateral sclerosis
     Dosage: UNK
     Route: 065
  2. EXSERVAN [Concomitant]
     Active Substance: RILUZOLE
     Indication: Amyotrophic lateral sclerosis
     Dosage: 50 MILLIGRAM, BID
     Route: 048
     Dates: start: 202212
  3. EXSERVAN [Concomitant]
     Active Substance: RILUZOLE
     Dosage: 50 MILLIGRAM, BID
     Route: 048
     Dates: start: 20230116
  4. DAPSONE [Concomitant]
     Active Substance: DAPSONE
     Indication: Autoimmune disorder
     Dosage: UNK
     Route: 065
  5. LEVOTHYROXINE [Concomitant]
     Active Substance: LEVOTHYROXINE
     Indication: Product used for unknown indication
     Dosage: UNK
     Route: 065
  6. BACLOFEN [Concomitant]
     Active Substance: BACLOFEN
     Indication: Product used for unknown indication
     Dosage: UNK
     Route: 065

REACTIONS (2)
  - Blister [Recovering/Resolving]
  - Sunburn [Recovering/Resolving]
